FAERS Safety Report 4634411-6 (Version None)
Quarter: 2005Q2

REPORT INFORMATION
  Report Type: 
  Country: None (occurrence: None)
  Receive Date: 20050412
  Receipt Date: 20050330
  Transmission Date: 20051028
  Serious: Yes (Hospitalization, Other)
  Sender: FDA-Public Use
  Company Number: 2005052108

PATIENT
  Sex: Male
  Weight: 79.3795 kg

DRUGS (1)
  1. VIAGRA [Suspect]
     Indication: ERECTILE DYSFUNCTION
     Dosage: (50 MG), ORAL
     Route: 048

REACTIONS (5)
  - DRUG EFFECT DECREASED [None]
  - FULL BLOOD COUNT DECREASED [None]
  - HYPERTENSION [None]
  - PEYRONIE'S DISEASE [None]
  - ULCER HAEMORRHAGE [None]
